FAERS Safety Report 13615986 (Version 1)
Quarter: 2017Q2

REPORT INFORMATION
  Report Type: Spontaneous
  Country: FR (occurrence: FR)
  Receive Date: 20170606
  Receipt Date: 20170606
  Transmission Date: 20170830
  Serious: Yes (Other)
  Sender: FDA-Public Use
  Company Number: FR-BAYER-2017-101560

PATIENT
  Sex: Female

DRUGS (1)
  1. MIRENA [Suspect]
     Active Substance: LEVONORGESTREL
     Dosage: 20 MCG/24HR, CONT
     Route: 015
     Dates: start: 20130730

REACTIONS (16)
  - Loss of libido [Unknown]
  - Fatigue [Unknown]
  - Mood swings [Unknown]
  - Formication [Unknown]
  - Vaginal infection [Unknown]
  - Migraine [Unknown]
  - Hypertrichosis [Unknown]
  - Anxiety [Unknown]
  - Breast pain [Unknown]
  - Urinary tract infection [Unknown]
  - Breast cyst [Unknown]
  - Vision blurred [Unknown]
  - Back pain [Unknown]
  - Acne [Unknown]
  - Peripheral vascular disorder [Unknown]
  - Diffuse alopecia [Unknown]
